FAERS Safety Report 7517709-3 (Version None)
Quarter: 2011Q2

REPORT INFORMATION
  Report Type: 
  Country: None (occurrence: None)
  Receive Date: 20110602
  Receipt Date: 20110525
  Transmission Date: 20111010
  Serious: No
  Sender: FDA-Public Use
  Company Number: US-BIOGENIDEC-2010BI026419

PATIENT
  Sex: Female

DRUGS (1)
  1. TYSABRI [Suspect]
     Indication: MULTIPLE SCLEROSIS
     Route: 042
     Dates: start: 20100325, end: 20100924

REACTIONS (8)
  - VISUAL IMPAIRMENT [None]
  - PAIN [None]
  - FEELING HOT [None]
  - GAIT DISTURBANCE [None]
  - MIGRAINE [None]
  - BALANCE DISORDER [None]
  - VISION BLURRED [None]
  - HEADACHE [None]
